FAERS Safety Report 19477122 (Version 1)
Quarter: 2021Q2

REPORT INFORMATION
  Report Type: Spontaneous
  Country: US (occurrence: US)
  Receive Date: 20210630
  Receipt Date: 20210630
  Transmission Date: 20210717
  Serious: Yes (Other)
  Sender: FDA-Public Use
  Company Number: US-MDD US OPERATIONS-MDD202106-001216

PATIENT
  Sex: Female
  Weight: 52.61 kg

DRUGS (10)
  1. SELEGILINE [Concomitant]
     Active Substance: SELEGILINE
  2. ALENDRONATE [Concomitant]
     Active Substance: ALENDRONATE SODIUM
     Dosage: NOT PROVIDED
  3. ROPINIROLE. [Concomitant]
     Active Substance: ROPINIROLE
  4. MELOXICAM. [Concomitant]
     Active Substance: MELOXICAM
  5. GLYCOPYRROLATE. [Concomitant]
     Active Substance: GLYCOPYRROLATE
  6. METHOCARBAMOL. [Concomitant]
     Active Substance: METHOCARBAMOL
  7. CANNABIDIOL [Concomitant]
     Active Substance: CANNABIDIOL
     Dosage: NOT PROVIDED
  8. APOKYN [Suspect]
     Active Substance: APOMORPHINE HYDROCHLORIDE
     Indication: PARKINSON^S DISEASE
     Route: 058
     Dates: start: 20210221
  9. LITHIUM. [Concomitant]
     Active Substance: LITHIUM
  10. OMEPRAZOLE. [Concomitant]
     Active Substance: OMEPRAZOLE

REACTIONS (5)
  - Head injury [Recovering/Resolving]
  - Fall [Recovering/Resolving]
  - Product dose omission issue [Unknown]
  - Dyskinesia [Recovering/Resolving]
  - Suicidal ideation [Recovering/Resolving]

NARRATIVE: CASE EVENT DATE: 202105
